FAERS Safety Report 7588363-X (Version None)
Quarter: 2011Q2

REPORT INFORMATION
  Report Type: 
  Country: None (occurrence: None)
  Receive Date: 20110627
  Receipt Date: 20110620
  Transmission Date: 20111010
  Serious: Yes (Other)
  Sender: FDA-Public Use
  Company Number: A0931973A

PATIENT
  Age: 64 Year

DRUGS (1)
  1. ALGINIC ACID + ALMINIUM HYDROXIDE +MAGNESIUM ARBONATE (FO (ALGIN.AC+AL [Suspect]
     Indication: PRODUCT USED FOR UNKNOWN INDICATION
     Dates: start: 20110601, end: 20110618

REACTIONS (8)
  - CONSTIPATION [None]
  - HAEMATOCHEZIA [None]
  - ASTHENIA [None]
  - DIPLOPIA [None]
  - HAEMORRHAGE [None]
  - FAECES DISCOLOURED [None]
  - HEADACHE [None]
  - CONFUSIONAL STATE [None]
